FAERS Safety Report 19208634 (Version 1)
Quarter: 2021Q2

REPORT INFORMATION
  Report Type: Spontaneous
  Country: BE (occurrence: BE)
  Receive Date: 20210504
  Receipt Date: 20210504
  Transmission Date: 20210717
  Serious: Yes (Hospitalization, Congenital Anomaly, Other)
  Sender: FDA-Public Use
  Company Number: BE-JNJFOC-20210460761

PATIENT

DRUGS (54)
  1. NOREPINEPHRINE. [Suspect]
     Active Substance: NOREPINEPHRINE
     Indication: EXPOSURE DURING PREGNANCY
     Dosage: UNK?PARENT^S ROUTE: UNKNOWN
     Route: 064
  2. ENOXAPARINE SODIQUE [Suspect]
     Active Substance: ENOXAPARIN SODIUM
     Indication: EXPOSURE DURING PREGNANCY
     Dosage: UNK?PARENT^S ROUTE: UNKNOWN
     Route: 064
  3. ATOSIBAN [Suspect]
     Active Substance: ATOSIBAN
     Indication: EXPOSURE DURING PREGNANCY
     Dosage: UNK?PARENT^S ROUTE: UNKNOWN
     Route: 064
  4. PACLITAXEL. [Suspect]
     Active Substance: PACLITAXEL
     Indication: EXPOSURE DURING PREGNANCY
     Dosage: UNK?PARENT^S ROUTE: UNKNOWN
     Route: 064
  5. DIGOXIN. [Suspect]
     Active Substance: DIGOXIN
     Indication: EXPOSURE DURING PREGNANCY
     Dosage: UNK?PARENT^S ROUTE: UNKNOWN
     Route: 064
  6. PANTOPRAZOLE [Suspect]
     Active Substance: PANTOPRAZOLE
     Indication: EXPOSURE DURING PREGNANCY
     Dosage: UNK?PARENT^S ROUTE: UNKNOWN
     Route: 064
  7. ANTI?D IMMUNOGLOBULIN [Suspect]
     Active Substance: HUMAN RHO(D) IMMUNE GLOBULIN
     Indication: EXPOSURE DURING PREGNANCY
     Dosage: UNK?PARENT^S ROUTE: UNKNOWN
     Route: 064
  8. CYCLOPHOSPHAMIDE. [Suspect]
     Active Substance: CYCLOPHOSPHAMIDE
     Indication: EXPOSURE DURING PREGNANCY
     Dosage: UNK?PARENT^S ROUTE: UNKNOWN
     Route: 064
  9. ALIZAPRIDE [Suspect]
     Active Substance: ALIZAPRIDE
     Indication: EXPOSURE DURING PREGNANCY
     Dosage: UNK?PARENT^S ROUTE: UNKNOWN
     Route: 064
  10. PROPYLTHIOURACIL. [Suspect]
     Active Substance: PROPYLTHIOURACIL
     Indication: EXPOSURE DURING PREGNANCY
     Dosage: UNK?PARENT^S ROUTE: UNKNOWN
     Route: 064
  11. PRAZEPAM [Suspect]
     Active Substance: PRAZEPAM
     Indication: EXPOSURE DURING PREGNANCY
     Dosage: UNK?PARENT^S ROUTE: UNKNOWN
     Route: 064
  12. TRAMADOL HYDROCHLORIDE. [Suspect]
     Active Substance: TRAMADOL HYDROCHLORIDE
     Indication: EXPOSURE DURING PREGNANCY
     Dosage: PARENT^S ROUTE: UNKNOWN
     Route: 064
  13. PEGFILGRASTIM [Suspect]
     Active Substance: PEGFILGRASTIM
     Indication: EXPOSURE DURING PREGNANCY
     Dosage: UNK?PARENT^S ROUTE: UNKNOWN
     Route: 064
  14. PYRIDOXINE [Suspect]
     Active Substance: PYRIDOXINE
     Indication: EXPOSURE DURING PREGNANCY
     Dosage: UNK?PARENT^S ROUTE: UNKNOWN
     Route: 064
  15. CLEMASTINE [Suspect]
     Active Substance: CLEMASTINE
     Indication: EXPOSURE DURING PREGNANCY
     Dosage: UNK?PARENT^S ROUTE: UNKNOWN
     Route: 064
  16. MIDAZOLAM. [Suspect]
     Active Substance: MIDAZOLAM
     Indication: EXPOSURE DURING PREGNANCY
     Dosage: UNK?PARENT^S ROUTE: UNKNOWN
     Route: 064
  17. PROGESTERONE. [Suspect]
     Active Substance: PROGESTERONE
     Indication: EXPOSURE DURING PREGNANCY
     Dosage: PARENT^S ROUTE: UNKNOWN
     Route: 064
  18. ZOLPIDEM [Suspect]
     Active Substance: ZOLPIDEM TARTRATE
     Indication: EXPOSURE DURING PREGNANCY
     Dosage: UNK?PARENT^S ROUTE: UNKNOWN
     Route: 064
  19. DOXORUBICIN [Suspect]
     Active Substance: DOXORUBICIN
     Indication: EXPOSURE DURING PREGNANCY
     Dosage: UNK?PARENT^S ROUTE: UNKNOWN
     Route: 064
  20. RITODRINE [Suspect]
     Active Substance: RITODRINE
     Indication: EXPOSURE DURING PREGNANCY
     Dosage: UNK?PARENT^S ROUTE: UNKNOWN
     Route: 064
  21. INSULIN [Suspect]
     Active Substance: INSULIN NOS
     Indication: EXPOSURE DURING PREGNANCY
     Dosage: UNK?PARENT^S ROUTE: UNKNOWN
     Route: 064
  22. DOCETAXEL. [Suspect]
     Active Substance: DOCETAXEL
     Indication: EXPOSURE DURING PREGNANCY
     Dosage: UNK?PARENT^S ROUTE: UNKNOWN
     Route: 064
  23. 5?FU [FLUOROURACIL] [Suspect]
     Active Substance: FLUOROURACIL
     Indication: EXPOSURE DURING PREGNANCY
     Dosage: UNK?PARENT^S ROUTE: UNKNOWN
     Route: 064
  24. PAROXETINE. [Suspect]
     Active Substance: PAROXETINE
     Indication: EXPOSURE DURING PREGNANCY
     Dosage: UNK?PARENT^S ROUTE: UNKNOWN
     Route: 064
  25. MAGNESIUM SULPHATE [MAGNESIUM SULFATE] [Suspect]
     Active Substance: MAGNESIUM SULFATE
     Indication: EXPOSURE DURING PREGNANCY
     Dosage: UNK?PARENT^S ROUTE: UNKNOWN
     Route: 064
  26. IFOSFAMIDE. [Suspect]
     Active Substance: IFOSFAMIDE
     Indication: EXPOSURE DURING PREGNANCY
     Dosage: UNK?PARENT^S ROUTE: UNKNOWN
     Route: 064
  27. CALCIUM CARBONATE. [Suspect]
     Active Substance: CALCIUM CARBONATE
     Indication: EXPOSURE DURING PREGNANCY
     Dosage: PARENT^S ROUTE: UNKNOWN
     Route: 064
  28. ASPIRIN [ACETYLSALICYLIC ACID] [Suspect]
     Active Substance: ASPIRIN
     Indication: EXPOSURE DURING PREGNANCY
     Dosage: PARENT^S ROUTE: UNKNOWN
     Route: 064
  29. ALLOPURINOL. [Suspect]
     Active Substance: ALLOPURINOL
     Indication: EXPOSURE DURING PREGNANCY
     Dosage: UNK?PARENT^S ROUTE: UNKNOWN
     Route: 064
  30. LIPEGFILGRASTIM [Suspect]
     Active Substance: LIPEGFILGRASTIM
     Indication: EXPOSURE DURING PREGNANCY
     Dosage: UNK?PARENT^S ROUTE: UNKNOWN
     Route: 064
  31. DIAZEPAM. [Suspect]
     Active Substance: DIAZEPAM
     Indication: EXPOSURE DURING PREGNANCY
     Dosage: UNK?PARENT^S ROUTE: UNKNOWN
     Route: 064
  32. ETILEFRINE [Suspect]
     Active Substance: ETILEFRINE
     Indication: EXPOSURE DURING PREGNANCY
     Dosage: UNK?PARENT^S ROUTE: UNKNOWN
     Route: 064
  33. LORMETAZEPAM [Suspect]
     Active Substance: LORMETAZEPAM
     Indication: EXPOSURE DURING PREGNANCY
     Dosage: UNK?PARENT^S ROUTE: UNKNOWN
     Route: 064
  34. DOMPERIDONE [Suspect]
     Active Substance: DOMPERIDONE
     Indication: EXPOSURE DURING PREGNANCY
     Dosage: PARENT^S ROUTE: UNKNOWN
     Route: 064
  35. OMEPRAZOLE. [Suspect]
     Active Substance: OMEPRAZOLE
     Indication: EXPOSURE DURING PREGNANCY
     Dosage: UNK?PARENT^S ROUTE: UNKNOWN
     Route: 064
  36. L?ASPARAGINASE [Suspect]
     Active Substance: ASPARAGINASE
     Indication: EXPOSURE DURING PREGNANCY
     Dosage: UNK?PARENT^S ROUTE: UNKNOWN
     Route: 064
  37. FILGRASTIM [Suspect]
     Active Substance: FILGRASTIM
     Indication: EXPOSURE DURING PREGNANCY
     Dosage: UNK?PARENT^S ROUTE: UNKNOWN
     Route: 064
  38. INDOMETACIN [Suspect]
     Active Substance: INDOMETHACIN
     Indication: EXPOSURE DURING PREGNANCY
     Dosage: UNK?PARENT^S ROUTE: UNKNOWN
     Route: 064
  39. RANITIDINE. [Suspect]
     Active Substance: RANITIDINE
     Indication: EXPOSURE DURING PREGNANCY
     Dosage: UNK?PARENT^S ROUTE: UNKNOWN
     Route: 064
  40. EPIRUBICIN [Suspect]
     Active Substance: EPIRUBICIN
     Indication: EXPOSURE DURING PREGNANCY
     Dosage: UNK?PARENT^S ROUTE: UNKNOWN
     Route: 064
  41. VINCRISTINE [Suspect]
     Active Substance: VINCRISTINE
     Indication: EXPOSURE DURING PREGNANCY
     Dosage: UNK?PARENT^S ROUTE: UNKNOWN
     Route: 064
  42. AMOXICILLIN AND CLAVULANATE POTASSIUM [AMOXICILLIN SODIUM;CLAVULANATE [Suspect]
     Active Substance: AMOXICILLIN\CLAVULANATE POTASSIUM
     Indication: EXPOSURE DURING PREGNANCY
     Dosage: UNK?PARENT^S ROUTE: UNKNOWN
     Route: 064
  43. FOLIC ACID. [Suspect]
     Active Substance: FOLIC ACID
     Indication: EXPOSURE DURING PREGNANCY
     Dosage: PARENT^S ROUTE: UNKNOWN
     Route: 064
  44. CETIRIZINE [Suspect]
     Active Substance: CETIRIZINE HYDROCHLORIDE
     Indication: EXPOSURE DURING PREGNANCY
     Dosage: UNK?PARENT^S ROUTE: UNKNOWN
     Route: 064
  45. ETOPOSIDE. [Suspect]
     Active Substance: ETOPOSIDE
     Indication: EXPOSURE DURING PREGNANCY
     Dosage: UNK?PARENT^S ROUTE: UNKNOWN
     Route: 064
  46. OXAZEPAM. [Suspect]
     Active Substance: OXAZEPAM
     Indication: EXPOSURE DURING PREGNANCY
     Dosage: UNK?PARENT^S ROUTE: UNKNOWN
     Route: 064
  47. L?THYROXINE [LEVOTHYROXINE] [Suspect]
     Active Substance: LEVOTHYROXINE
     Indication: EXPOSURE DURING PREGNANCY
     Dosage: UNK?PARENT^S ROUTE: UNKNOWN
     Route: 064
  48. ALPRAZOLAM. [Suspect]
     Active Substance: ALPRAZOLAM
     Indication: EXPOSURE DURING PREGNANCY
     Dosage: UNK?PARENT^S ROUTE: UNKNOWN
     Route: 064
  49. POTASSIUM GLUCONATE [Suspect]
     Active Substance: POTASSIUM GLUCONATE
     Indication: EXPOSURE DURING PREGNANCY
     Dosage: UNK?PARENT^S ROUTE: UNKNOWN
     Route: 064
  50. NADROPARINE [Suspect]
     Active Substance: NADROPARIN
     Indication: EXPOSURE DURING PREGNANCY
     Dosage: UNK?PARENT^S ROUTE: UNKNOWN
     Route: 064
  51. FLECAINIDE ACETATE. [Suspect]
     Active Substance: FLECAINIDE ACETATE
     Indication: EXPOSURE DURING PREGNANCY
     Dosage: UNK?PARENT^S ROUTE: UNKNOWN
     Route: 064
  52. CISPLATIN. [Suspect]
     Active Substance: CISPLATIN
     Indication: EXPOSURE DURING PREGNANCY
     Dosage: PARENT^S ROUTE: UNKNOWN
     Route: 064
  53. PIRITRAMIDE [Suspect]
     Active Substance: PIRITRAMIDE
     Indication: EXPOSURE DURING PREGNANCY
     Dosage: PARENT^S ROUTE: UNKNOWN
     Route: 064
  54. BETAMETHASONE. [Concomitant]
     Active Substance: BETAMETHASONE
     Indication: EXPOSURE DURING PREGNANCY
     Dosage: UNK?PARENT^S ROUTE: UNKNOWN
     Route: 064

REACTIONS (38)
  - Asthma [Unknown]
  - Inguinal hernia [Unknown]
  - Systemic infection [Unknown]
  - Klebsiella sepsis [Unknown]
  - Eczema [Unknown]
  - Ventricular septal defect [Unknown]
  - Developmental hip dysplasia [Unknown]
  - Thrombosis [Unknown]
  - Sepsis neonatal [Unknown]
  - Small for dates baby [Unknown]
  - Behaviour disorder [Unknown]
  - Hyperbilirubinaemia [Unknown]
  - Atrial septal defect [Unknown]
  - Haemangioma [Unknown]
  - Wolff-Parkinson-White syndrome [Unknown]
  - Speech disorder developmental [Unknown]
  - Emotional disorder [Unknown]
  - Foetal exposure during pregnancy [Unknown]
  - Posture abnormal [Unknown]
  - Cerebral haemorrhage [Unknown]
  - Foetal distress syndrome [Unknown]
  - Low birth weight baby [Unknown]
  - Cafe au lait spots [Unknown]
  - Phimosis [Unknown]
  - Cryptorchism [Unknown]
  - Motor developmental delay [Unknown]
  - Kidney duplex [Unknown]
  - Congenital anomaly [Unknown]
  - Overweight [Unknown]
  - Thrombocytopenia [Unknown]
  - Pulmonary valve stenosis [Unknown]
  - Pyelocaliectasis [Unknown]
  - Anaemia [Unknown]
  - Anal stenosis [Unknown]
  - Ear malformation [Unknown]
  - Premature baby [Unknown]
  - Dacryostenosis acquired [Unknown]
  - Cognitive disorder [Unknown]
